FAERS Safety Report 4850496-6 (Version None)
Quarter: 2005Q4

REPORT INFORMATION
  Report Type: 
  Country: None (occurrence: None)
  Receive Date: 20051125
  Receipt Date: 20041118
  Transmission Date: 20060501
  Serious: Yes (Other)
  Sender: FDA-Public Use
  Company Number: HQWYE680424NOV04

PATIENT
  Age: 2 Year
  Sex: Female
  Weight: 7.72 kg

DRUGS (1)
  1. PREMARIN [Suspect]
     Indication: CONGENITAL LABIA PUDENDI ADHESIONS
     Dosage: A VERY SMALL AMOUNT/ONE
     Dates: start: 20041116, end: 20041116

REACTIONS (5)
  - CRYING [None]
  - FEELING COLD [None]
  - HYPERHIDROSIS [None]
  - TREMOR [None]
  - VOMITING [None]
